FAERS Safety Report 26206899 (Version 1)
Quarter: 2025Q4

REPORT INFORMATION
  Report Type: Spontaneous
  Country: EU (occurrence: EU)
  Receive Date: 20251229
  Receipt Date: 20251229
  Transmission Date: 20260117
  Serious: Yes (Other)
  Sender: TEVA
  Company Number: None

PATIENT
  Age: 57 Year
  Sex: Female
  Weight: 72 kg

DRUGS (3)
  1. QUETIAPINE FUMARATE [Suspect]
     Active Substance: QUETIAPINE FUMARATE
     Indication: Delusion
     Dosage: BRAND NAME NOT SPECIFIED
     Route: 065
     Dates: start: 20251204, end: 20251205
  2. QUETIAPINE FUMARATE [Suspect]
     Active Substance: QUETIAPINE FUMARATE
     Indication: Delusion
     Dosage: BRAND NAME NOT SPECIFIED
     Route: 065
  3. QUETIAPINE FUMARATE [Suspect]
     Active Substance: QUETIAPINE FUMARATE
     Indication: Delusion
     Dosage: (0.25MG, 75MG, 25 MG; BRAND NAME NOT SPECIFIED
     Route: 065
     Dates: start: 2016

REACTIONS (1)
  - Loss of consciousness [Recovered/Resolved]
